FAERS Safety Report 24468358 (Version 2)
Quarter: 2024Q4

REPORT INFORMATION
  Report Type: Spontaneous
  Country: EG (occurrence: EG)
  Receive Date: 20241018
  Receipt Date: 20241106
  Transmission Date: 20250115
  Serious: Yes (Hospitalization, Other)
  Sender: RANBAXY
  Company Number: EG-SUN PHARMACEUTICAL INDUSTRIES LTD-2024R1-473902

PATIENT
  Age: 48 Year
  Sex: Female

DRUGS (2)
  1. PREGABALIN [Suspect]
     Active Substance: PREGABALIN
     Indication: Fibromyalgia
     Dosage: 75 MILLIGRAM, BID
     Route: 065
  2. PREGABALIN [Suspect]
     Active Substance: PREGABALIN
     Dosage: 150 MILLIGRAM, BID
     Route: 065

REACTIONS (1)
  - Parkinsonism [Recovered/Resolved]
